FAERS Safety Report 9101184 (Version 2)
Quarter: 2013Q1

REPORT INFORMATION
  Report Type: Spontaneous
  Country: US (occurrence: US)
  Receive Date: 20130215
  Receipt Date: 20130301
  Transmission Date: 20140127
  Serious: Yes (Hospitalization, Other)
  Sender: FDA-Public Use
  Company Number: US-BAXTER-2013BAX001521

PATIENT
  Sex: Male

DRUGS (3)
  1. DIANEAL LOW CALCIUM [Suspect]
     Indication: PERITONEAL DIALYSIS
     Route: 033
  2. DIANEAL LOW CALCIUM [Suspect]
     Indication: PERITONEAL DIALYSIS
     Route: 033
  3. DIANEAL LOW CALCIUM (ULTRABAG) [Suspect]
     Indication: PERITONEAL DIALYSIS
     Route: 033

REACTIONS (7)
  - Localised infection [Recovering/Resolving]
  - Failure to thrive [Recovering/Resolving]
  - Nausea [Recovering/Resolving]
  - Vomiting [Recovering/Resolving]
  - Pyrexia [Recovering/Resolving]
  - Dehydration [Recovering/Resolving]
  - Hypotension [Recovering/Resolving]
